FAERS Safety Report 5819989-9 (Version None)
Quarter: 2008Q3

REPORT INFORMATION
  Report Type: 
  Country: None (occurrence: None)
  Receive Date: 20080724
  Receipt Date: 20080718
  Transmission Date: 20090109
  Serious: Yes (Death)
  Sender: FDA-Public Use
  Company Number: GB-RANBAXY-2008RR-16513

PATIENT

DRUGS (3)
  1. ATENOLOL [Suspect]
     Dosage: 25 MG, QD
     Route: 048
  2. ASPIRIN [Concomitant]
  3. BISOPROLOL FUMARATE [Concomitant]
     Dosage: 2.5 MG, UNK

REACTIONS (1)
  - CARDIAC DEATH [None]
